FAERS Safety Report 5413623-8 (Version None)
Quarter: 2007Q3

REPORT INFORMATION
  Report Type: 
  Country: None (occurrence: None)
  Receive Date: 20070814
  Receipt Date: 20070312
  Transmission Date: 20080115
  Serious: No
  Sender: FDA-Public Use
  Company Number: US-BRISTOL-MYERS SQUIBB COMPANY-13710454

PATIENT
  Age: 58 Year
  Sex: Female
  Weight: 99 kg

DRUGS (5)
  1. GLUCOVANCE [Suspect]
     Indication: DIABETES MELLITUS
     Route: 048
  2. SYNTHROID [Concomitant]
  3. LIPITOR [Concomitant]
  4. CYMBALTA [Concomitant]
  5. DIOVAN HCT [Concomitant]

REACTIONS (6)
  - HEADACHE [None]
  - NAUSEA [None]
  - PHARMACEUTICAL PRODUCT COMPLAINT [None]
  - PHARYNGOLARYNGEAL PAIN [None]
  - SINUS CONGESTION [None]
  - VOMITING [None]
